FAERS Safety Report 12729062 (Version 1)
Quarter: 2016Q3

REPORT INFORMATION
  Report Type: Spontaneous
  Country: US (occurrence: US)
  Receive Date: 20160908
  Receipt Date: 20160908
  Transmission Date: 20161109
  Serious: Yes (Other)
  Sender: FDA-Public Use
  Company Number: None

PATIENT
  Age: 59 Year
  Sex: Male
  Weight: 110.25 kg

DRUGS (6)
  1. LISINOPRIL (PRINIVIL) [Concomitant]
  2. VITAMIN B12 [Concomitant]
     Active Substance: CYANOCOBALAMIN
  3. LEDIPASVIR 90MG/SOFOSBUVIR 400MG [Suspect]
     Active Substance: LEDIPASVIR\SOFOSBUVIR
     Indication: HEPATITIS C
     Route: 048
     Dates: start: 20160420, end: 20160623
  4. CYCLOBENZAPRINE (FLEXERIL) [Concomitant]
  5. ALLOPURINOL (ZYLOPRIM) [Concomitant]
  6. NEURONTIN [Concomitant]
     Active Substance: GABAPENTIN

REACTIONS (2)
  - Hypoaesthesia [None]
  - Abasia [None]

NARRATIVE: CASE EVENT DATE: 20160603
